FAERS Safety Report 8315782-6 (Version None)
Quarter: 2012Q2

REPORT INFORMATION
  Report Type: 
  Country: None (occurrence: None)
  Receive Date: 20120426
  Receipt Date: 20120413
  Transmission Date: 20120825
  Serious: Yes (Hospitalization)
  Sender: FDA-Public Use
  Company Number: CZ-MYLANLABS-2012S1007996

PATIENT
  Age: 22 Year
  Sex: Male
  Weight: 101 kg

DRUGS (3)
  1. BISOPROLOL FUMARATE [Suspect]
     Indication: HYPERTENSION
     Route: 065
  2. VERAPAMIL [Interacting]
     Indication: HYPERTENSION
     Dosage: DF = 240MG VERAPAMIL/4MG TRANDOLAPRIL
     Route: 065
  3. MOXONIDINE [Concomitant]
     Indication: HYPERTENSION
     Route: 065

REACTIONS (2)
  - BRADYARRHYTHMIA [None]
  - DRUG INTERACTION [None]
